FAERS Safety Report 5968506-1 (Version None)
Quarter: 2008Q4

REPORT INFORMATION
  Report Type: 
  Country: None (occurrence: None)
  Receive Date: 20081121
  Receipt Date: 20081121
  Transmission Date: 20090506
  Serious: Yes (Other)
  Sender: FDA-Public Use
  Company Number: None

PATIENT
  Age: 35 Year
  Sex: Female
  Weight: 63.5036 kg

DRUGS (1)
  1. MIRENA [Suspect]
     Indication: CONTRACEPTION
     Dates: start: 20071102, end: 20081030

REACTIONS (6)
  - DIZZINESS [None]
  - HYPOAESTHESIA [None]
  - IRRITABILITY [None]
  - LOSS OF LIBIDO [None]
  - PARAESTHESIA [None]
  - TINNITUS [None]
